FAERS Safety Report 8481275-9 (Version None)
Quarter: 2012Q3

REPORT INFORMATION
  Report Type: 
  Country: None (occurrence: None)
  Receive Date: 20120702
  Receipt Date: 20120627
  Transmission Date: 20120928
  Serious: Yes (Other)
  Sender: FDA-Public Use
  Company Number: VE-PFIZER INC-2012156001

PATIENT
  Sex: Male

DRUGS (2)
  1. ZOLOFT [Concomitant]
     Dosage: 50 MG, UNK
  2. LIPITOR [Suspect]
     Dosage: 40 MG, UNK

REACTIONS (1)
  - CARDIAC DISORDER [None]
